FAERS Safety Report 4413961-1 (Version None)
Quarter: 2004Q3

REPORT INFORMATION
  Report Type: 
  Country: None (occurrence: None)
  Receive Date: 20040729
  Receipt Date: 20040614
  Transmission Date: 20050211
  Serious: Yes (Hospitalization)
  Sender: FDA-Public Use
  Company Number: D01200402393

PATIENT
  Age: 72 Year
  Sex: Male

DRUGS (4)
  1. (OXALIPLATIN) - SOLUTION - 85 MG/M2 [Suspect]
     Dosage: SEE IMAGE
     Route: 042
     Dates: start: 20040524, end: 20040524
  2. FLUOROURACIL [Suspect]
     Dosage: SEE IMAGE
     Route: 042
  3. SR57746 OR PLACEBO-CAPSULE- 1 MG [Suspect]
     Indication: CHEMOTHERAPY NEUROTOXICITY ATTENUATION
     Dosage: SEE IMAGE
  4. SR57746 OR PLACEBO-CAPSULE- 1 MG [Suspect]
     Indication: CHEMOTHERAPY NEUROTOXICITY ATTENUATION
     Dosage: SEE IMAGE

REACTIONS (2)
  - INJECTION SITE REACTION [None]
  - VEIN PAIN [None]
